FAERS Safety Report 8477991-5 (Version None)
Quarter: 2012Q2

REPORT INFORMATION
  Report Type: 
  Country: None (occurrence: None)
  Receive Date: 20120629
  Receipt Date: 20120619
  Transmission Date: 20120825
  Serious: Yes (Other)
  Sender: FDA-Public Use
  Company Number: US-BAYER-2012-042309

PATIENT
  Age: 42 Year
  Sex: Female
  Weight: 108.84 kg

DRUGS (17)
  1. DROSPIRENONE AND ETHINYL ESTRADIOL [Suspect]
     Indication: CONTRACEPTION
  2. AMITRIPTYLINE HCL [Concomitant]
     Dosage: 100 MG, TABLETS
     Dates: start: 20090222
  3. TRIAMTERENE AND HYDROCHLOROTHIAZIDE [Concomitant]
     Dosage: 37.5 / 25
     Dates: start: 20090605
  4. DROSPIRENONE AND ETHINYL ESTRADIOL [Suspect]
     Indication: PREMENSTRUAL SYNDROME
     Dosage: UNK
     Dates: start: 20080726, end: 20090701
  5. PREVIDENT [Concomitant]
     Dosage: UNK
     Dates: start: 20090518
  6. YASMIN [Suspect]
     Indication: POLYCYSTIC OVARIES
  7. DROSPIRENONE AND ETHINYL ESTRADIOL [Suspect]
     Indication: POLYCYSTIC OVARIES
  8. HYDROCODONE BITARTRATE + ACETAMINOPHEN [Concomitant]
     Dosage: 7.5/500MG
     Dates: start: 20090521
  9. METHYLPREDNISOLONE [Concomitant]
     Dosage: 4 MG, UNK
     Dates: start: 20090521
  10. CARDIZEM [Concomitant]
     Dosage: UNK
     Dates: start: 20090605
  11. ALPRAZOLAM [Concomitant]
     Dosage: 0.5 MG, UNK TABLET
     Dates: start: 20090502
  12. YASMIN [Suspect]
     Indication: CONTRACEPTION
  13. STRATTERA [Concomitant]
     Dosage: 80 MG, UNK DAILY CAPSULE
     Dates: start: 20090318
  14. FLUOXETINE HYDROCHLORIDE [Concomitant]
     Dosage: 60 MG, UNK
     Dates: start: 20090410
  15. YASMIN [Suspect]
     Indication: PREMENSTRUAL SYNDROME
     Dosage: UNK
     Dates: start: 20080114, end: 20080702
  16. DILTIAZEM HCL [Concomitant]
     Dosage: 250 MG, UNK CAPSULE
     Dates: start: 20090306
  17. PENICILLIN VK [Concomitant]
     Dosage: 500 MG, UNK
     Dates: start: 20090521

REACTIONS (4)
  - DEEP VEIN THROMBOSIS [None]
  - PAIN [None]
  - PAIN IN EXTREMITY [None]
  - INJURY [None]
